FAERS Safety Report 24275943 (Version 2)
Quarter: 2024Q3

REPORT INFORMATION
  Report Type: Report from Study
  Country: DE (occurrence: DE)
  Receive Date: 20240903
  Receipt Date: 20240909
  Transmission Date: 20241017
  Serious: Yes (Life-Threatening)
  Sender: ROCHE
  Company Number: DE-ROCHE-10000068225

PATIENT
  Age: 42 Year
  Sex: Male
  Weight: 174 kg

DRUGS (1)
  1. OCRELIZUMAB [Suspect]
     Active Substance: OCRELIZUMAB
     Indication: Multiple sclerosis
     Route: 042
     Dates: start: 20180817, end: 20230602

REACTIONS (1)
  - Selective IgG subclass deficiency [Recovering/Resolving]

NARRATIVE: CASE EVENT DATE: 20240111
